FAERS Safety Report 5923299-9 (Version None)
Quarter: 2008Q4

REPORT INFORMATION
  Report Type: 
  Country: None (occurrence: None)
  Receive Date: 20081014
  Receipt Date: 20081007
  Transmission Date: 20090506
  Serious: Yes (Hospitalization)
  Sender: FDA-Public Use
  Company Number: 2008BI023700

PATIENT
  Sex: Female

DRUGS (1)
  1. TYSABRI [Suspect]
     Indication: MULTIPLE SCLEROSIS
     Dosage: 300 MG; QM; IV
     Route: 042
     Dates: start: 20080508

REACTIONS (11)
  - BALANCE DISORDER [None]
  - BLOOD ELECTROLYTES DECREASED [None]
  - BLOOD GLUCOSE DECREASED [None]
  - BLOOD POTASSIUM DECREASED [None]
  - DEHYDRATION [None]
  - GAIT DISTURBANCE [None]
  - METABOLIC ENCEPHALOPATHY [None]
  - PAIN IN EXTREMITY [None]
  - PARANOIA [None]
  - RENAL FAILURE [None]
  - URINARY TRACT INFECTION [None]
